FAERS Safety Report 9931175 (Version 2)
Quarter: 2014Q2

REPORT INFORMATION
  Report Type: Spontaneous
  Country: JP (occurrence: JP)
  Receive Date: 20140228
  Receipt Date: 20140401
  Transmission Date: 20141212
  Serious: Yes (Other)
  Sender: FDA-Public Use
  Company Number: JP-ROCHE-1356123

PATIENT
  Age: 84 Year
  Sex: Male
  Weight: 47 kg

DRUGS (11)
  1. TAMIFLU [Suspect]
     Indication: INFLUENZA
     Dosage: DOSAGE IS UNCERTAIN.
     Route: 048
     Dates: start: 201401
  2. TAMIFLU [Suspect]
     Indication: ANTIVIRAL PROPHYLAXIS
     Route: 048
     Dates: start: 20140212, end: 20140220
  3. LYRICA [Suspect]
     Indication: NEURALGIA
     Route: 048
  4. VANCOMYCIN HYDROCHLORIDE [Suspect]
     Indication: CLOSTRIDIUM DIFFICILE COLITIS
     Route: 065
     Dates: start: 20140128, end: 20140209
  5. SULTAMICILLIN TOSILATE HYDRATE [Suspect]
     Indication: URINARY TRACT INFECTION
     Route: 048
  6. FUROSEMIDE [Concomitant]
     Route: 048
     Dates: start: 20140127
  7. FEBURIC [Concomitant]
     Indication: HYPERURICAEMIA
     Route: 048
     Dates: start: 20140127
  8. WARFARIN [Concomitant]
     Route: 048
     Dates: start: 20140127
  9. REFLEX (JAPAN) [Concomitant]
     Indication: DEPRESSION
     Route: 048
     Dates: start: 20140131
  10. ERYTHROCINE [Concomitant]
     Route: 048
     Dates: start: 20140127
  11. PROBUCOL [Concomitant]
     Route: 048
     Dates: start: 20140127

REACTIONS (1)
  - Renal failure [Unknown]
